FAERS Safety Report 5083523-4 (Version None)
Quarter: 2006Q3

REPORT INFORMATION
  Report Type: 
  Country: None (occurrence: None)
  Receive Date: 20060818
  Receipt Date: 20060810
  Transmission Date: 20061208
  Serious: Yes (Other)
  Sender: FDA-Public Use
  Company Number: 2006UW16237

PATIENT
  Age: 200 Month
  Sex: Female

DRUGS (7)
  1. PULMICORT [Suspect]
     Indication: ASTHMA
     Route: 055
     Dates: start: 19941027, end: 19990601
  2. PULMICORT [Suspect]
     Route: 055
     Dates: start: 20030601
  3. ELOCON [Concomitant]
  4. ELIDEL [Concomitant]
  5. TRIAMCINOLONE [Concomitant]
  6. ALBUTEROL [Concomitant]
     Route: 055
     Dates: start: 19990101
  7. PREDNISONE [Concomitant]

REACTIONS (1)
  - CATARACT [None]
